FAERS Safety Report 8586974-6 (Version None)
Quarter: 2012Q3

REPORT INFORMATION
  Report Type: 
  Country: None (occurrence: None)
  Receive Date: 20120810
  Receipt Date: 20120803
  Transmission Date: 20120928
  Serious: Yes (Hospitalization, Disabling)
  Sender: FDA-Public Use
  Company Number: CA-TEVA-350577USA

PATIENT
  Sex: Female
  Weight: 57 kg

DRUGS (9)
  1. CALCIUM MAGNESIUM ZINC [Concomitant]
     Indication: VITAMIN SUPPLEMENTATION
     Dosage: 333MG/116.66MG/16.66MG
     Route: 048
     Dates: start: 20070101
  2. RISEDRONATE SODIUM [Concomitant]
     Indication: OSTEOPOROSIS
     Dosage: .7143 MILLIGRAM DAILY;
     Route: 048
     Dates: start: 20071101
  3. TREANDA [Suspect]
     Indication: NON-HODGKIN'S LYMPHOMA UNSPECIFIED HISTOLOGY INDOLENT
     Route: 042
     Dates: start: 20120523
  4. CURCUMA LONGA RHIZOME [Concomitant]
     Indication: VITAMIN SUPPLEMENTATION
     Dosage: 3 DOSAGE FORMS DAILY;
     Route: 048
     Dates: start: 20120501
  5. PANADEINE CO [Concomitant]
     Indication: BACK PAIN
     Dosage: 1-2 TABLETS (AS NEEDED)
     Route: 048
     Dates: start: 20120612
  6. ERGOCALCIFEROL [Concomitant]
     Indication: VITAMIN SUPPLEMENTATION
     Dosage: 1000 - 6000 IU
     Route: 048
     Dates: start: 20120501
  7. DIMENHYDRINATE [Concomitant]
     Indication: ABDOMINAL DISCOMFORT
     Dosage: 25-50 MG (EVERY 6 HOURS AS NEEDED)
     Dates: start: 20120519
  8. ZOPICLONE [Concomitant]
     Indication: INSOMNIA
     Dosage: 7.5 MILLIGRAM DAILY;
     Route: 048
     Dates: start: 20090101
  9. ACETAMINOPHEN [Concomitant]
     Indication: BACK PAIN
     Dosage: 1 TO 2 TABLETS (AS NEEDED)
     Route: 048
     Dates: start: 20120531

REACTIONS (2)
  - PERIPHERAL MOTOR NEUROPATHY [None]
  - URINARY RETENTION [None]
